FAERS Safety Report 16918414 (Version 1)
Quarter: 2019Q4

REPORT INFORMATION
  Report Type: Spontaneous
  Country: FR (occurrence: FR)
  Receive Date: 20191015
  Receipt Date: 20191015
  Transmission Date: 20200122
  Serious: Yes (Hospitalization)
  Sender: FDA-Public Use
  Company Number: FR-PFIZER INC-2019435744

PATIENT
  Age: 29 Year
  Sex: Male
  Weight: 70 kg

DRUGS (8)
  1. MABTHERA [Suspect]
     Active Substance: RITUXIMAB
     Indication: BURKITT^S LYMPHOMA
     Dosage: 2840 MG, CYCLIC
     Route: 041
     Dates: start: 20180817, end: 20180910
  2. ARACYTINE [Suspect]
     Active Substance: CYTARABINE
     Indication: BURKITT^S LYMPHOMA
     Dosage: 160 MG, CYCLIC
     Route: 024
     Dates: start: 20180819, end: 20180910
  3. DOXORUBICINE ACCORD [Suspect]
     Active Substance: DOXORUBICIN
     Indication: BURKITT^S LYMPHOMA
     Dosage: 230 MG, CYCLIC
     Route: 041
     Dates: start: 20180819, end: 20180906
  4. HYDROCORTISONE ACETATE. [Suspect]
     Active Substance: HYDROCORTISONE ACETATE
     Indication: BURKITT^S LYMPHOMA
     Dosage: 80 MG, CYCLIC
     Route: 024
     Dates: start: 20180819, end: 20180910
  5. METHOTREXATE MYLAN [Suspect]
     Active Substance: METHOTREXATE SODIUM
     Indication: BURKITT^S LYMPHOMA
     Dosage: 11200 MG, CYCLIC
     Route: 041
     Dates: start: 20180818, end: 20180905
  6. ENDOXAN [CYCLOPHOSPHAMIDE MONOHYDRATE] [Suspect]
     Active Substance: CYCLOPHOSPHAMIDE
     Indication: BURKITT^S LYMPHOMA
     Dosage: 5700 MG, CYCLIC
     Route: 041
     Dates: start: 20180819, end: 20180908
  7. VINCRISTINE SULFATE. [Suspect]
     Active Substance: VINCRISTINE SULFATE
     Indication: BURKITT^S LYMPHOMA
     Dosage: 6 MG, CYCLIC
     Route: 041
     Dates: start: 20180818, end: 20180910
  8. METHOTREXATE BIODIM [Suspect]
     Active Substance: METHOTREXATE
     Indication: BURKITT^S LYMPHOMA
     Dosage: 60 MG, CYCLIC
     Route: 024
     Dates: start: 20180819, end: 20180910

REACTIONS (2)
  - Mucosal inflammation [Recovered/Resolved]
  - Bone marrow failure [Recovered/Resolved]

NARRATIVE: CASE EVENT DATE: 20180827
